FAERS Safety Report 9081310 (Version 2)
Quarter: 2013Q1

REPORT INFORMATION
  Report Type: Report from Study
  Country: US (occurrence: US)
  Receive Date: 20130130
  Receipt Date: 20130220
  Transmission Date: 20140127
  Serious: Yes (Other)
  Sender: FDA-Public Use
  Company Number: US-NAPPMUNDI-USA-2013-0097877

PATIENT
  Sex: Male

DRUGS (2)
  1. OXYCONTIN (NDA 22-272) [Suspect]
     Indication: PAIN
     Dosage: 160 MG, Q8H
     Route: 048
  2. OXYCONTIN (NDA 22-272) [Suspect]
     Dosage: 80 MG, Q8H
     Route: 048

REACTIONS (1)
  - Metastatic lymphoma [Not Recovered/Not Resolved]
